FAERS Safety Report 6447822-3 (Version None)
Quarter: 2009Q4

REPORT INFORMATION
  Report Type: 
  Country: None (occurrence: None)
  Receive Date: 20091120
  Receipt Date: 20090903
  Transmission Date: 20100525
  Serious: No
  Sender: FDA-Public Use
  Company Number: A0806420A

PATIENT
  Sex: Male

DRUGS (1)
  1. VERAMYST [Suspect]
     Indication: MULTIPLE ALLERGIES
     Route: 045

REACTIONS (3)
  - ADVERSE DRUG REACTION [None]
  - DRY EYE [None]
  - NASAL ULCER [None]
